FAERS Safety Report 11052014 (Version 2)
Quarter: 2015Q2

REPORT INFORMATION
  Report Type: Spontaneous
  Country: US (occurrence: US)
  Receive Date: 20150421
  Receipt Date: 20150507
  Transmission Date: 20150821
  Serious: No
  Sender: FDA-Public Use
  Company Number: US-BAYER-2015-152245

PATIENT
  Age: 72 Year
  Sex: Male

DRUGS (8)
  1. ADRUCIL [Concomitant]
     Active Substance: FLUOROURACIL
  2. WARFARIN [Concomitant]
     Active Substance: WARFARIN
     Dosage: UNK
  3. CAMPTOSAR [Concomitant]
     Active Substance: IRINOTECAN HYDROCHLORIDE
  4. LEUCOVORIN [Concomitant]
     Active Substance: LEUCOVORIN
  5. ELOXATIN [Concomitant]
     Active Substance: OXALIPLATIN
     Dosage: UNK
  6. DOXAZOSIN [Concomitant]
     Active Substance: DOXAZOSIN\DOXAZOSIN MESYLATE
  7. CLARITIN [Suspect]
     Active Substance: LORATADINE
     Indication: SEASONAL ALLERGY
     Dosage: 1 DF, 1 PILL 13-APR-2015 AT 8:00PM AND AGAIN 14-APR-2015 AT 8:00AM
     Route: 048
     Dates: start: 20150413
  8. ATENOLOL. [Concomitant]
     Active Substance: ATENOLOL
     Dosage: UNK

REACTIONS (1)
  - Extra dose administered [Unknown]

NARRATIVE: CASE EVENT DATE: 20150413
